FAERS Safety Report 7111982-1 (Version None)
Quarter: 2010Q4

REPORT INFORMATION
  Report Type: 
  Country: None (occurrence: None)
  Receive Date: 20101119
  Receipt Date: 20101108
  Transmission Date: 20110411
  Serious: Yes (Disabling, Other)
  Sender: FDA-Public Use
  Company Number: IT-TEVA-255238ISR

PATIENT
  Age: 44 Year
  Sex: Female

DRUGS (2)
  1. COPAXONE [Suspect]
     Indication: MULTIPLE SCLEROSIS
     Route: 065
     Dates: start: 20091101
  2. AZATHIOPRINE [Concomitant]
     Dates: start: 20020101

REACTIONS (2)
  - MYELITIS [None]
  - NEUROMYELITIS OPTICA [None]
